FAERS Safety Report 11176437 (Version 3)
Quarter: 2015Q3

REPORT INFORMATION
  Report Type: Spontaneous
  Country: JP (occurrence: JP)
  Receive Date: 20150610
  Receipt Date: 20150908
  Transmission Date: 20151125
  Serious: Yes (Other)
  Sender: FDA-Public Use
  Company Number: JP-AMGEN-JPNSP2015056393

PATIENT
  Age: 5 Decade
  Sex: Female
  Weight: 60 kg

DRUGS (12)
  1. G-LASTA [Suspect]
     Active Substance: PEGFILGRASTIM
     Indication: COLONY STIMULATING FACTOR PROPHYLAXIS
     Dosage: 3.6 MG, UNK
     Route: 058
  2. ENDOXAN                            /00021102/ [Concomitant]
     Active Substance: CYCLOPHOSPHAMIDE
     Dosage: 750 MG, QD
     Route: 042
     Dates: start: 20150414, end: 20150414
  3. 5-FU                               /00098801/ [Suspect]
     Active Substance: FLUOROURACIL
     Dosage: 750 MG, QD
     Route: 042
     Dates: start: 20150414, end: 20150414
  4. EPIRUBICIN HYDROCHLORIDE. [Concomitant]
     Active Substance: EPIRUBICIN HYDROCHLORIDE
     Indication: BREAST CANCER
     Dosage: UNK
     Route: 065
  5. 5-FU                               /00098801/ [Suspect]
     Active Substance: FLUOROURACIL
     Dosage: 750 MG, QD
     Route: 042
     Dates: start: 20150514, end: 20150514
  6. EPIRUBICIN HYDROCHLORIDE. [Concomitant]
     Active Substance: EPIRUBICIN HYDROCHLORIDE
     Dosage: 150 MG, QD
     Route: 042
     Dates: start: 20150514, end: 20150514
  7. EPIRUBICIN HYDROCHLORIDE. [Concomitant]
     Active Substance: EPIRUBICIN HYDROCHLORIDE
     Dosage: 150 MG, QD
     Route: 042
     Dates: start: 20150414, end: 20150414
  8. ENDOXAN                            /00021102/ [Concomitant]
     Active Substance: CYCLOPHOSPHAMIDE
     Dosage: 750 MG, QD
     Route: 042
     Dates: start: 20150514, end: 20150514
  9. G-LASTA [Suspect]
     Active Substance: PEGFILGRASTIM
     Dosage: 3.6 MG, QD
     Route: 058
     Dates: start: 20150517
  10. ENDOXAN                            /00021102/ [Concomitant]
     Active Substance: CYCLOPHOSPHAMIDE
     Indication: BREAST CANCER
     Dosage: UNK
     Route: 065
  11. 5-FU                               /00098801/ [Suspect]
     Active Substance: FLUOROURACIL
     Indication: BREAST CANCER
     Dosage: UNK
     Route: 065
  12. G-LASTA [Suspect]
     Active Substance: PEGFILGRASTIM
     Dosage: 3.6 MG, QD
     Route: 058
     Dates: start: 20150417, end: 20150417

REACTIONS (2)
  - Loss of consciousness [Recovered/Resolved]
  - Loss of consciousness [Recovered/Resolved]

NARRATIVE: CASE EVENT DATE: 20150417
